FAERS Safety Report 22027724 (Version 1)
Quarter: 2023Q1

REPORT INFORMATION
  Report Type: Spontaneous
  Country: DK (occurrence: DK)
  Receive Date: 20230223
  Receipt Date: 20230223
  Transmission Date: 20230418
  Serious: Yes (Disabling)
  Sender: FDA-Public Use
  Company Number: None

PATIENT
  Age: 52 Year
  Sex: Male
  Weight: 95 kg

DRUGS (3)
  1. NIX [Interacting]
     Active Substance: PERMETHRIN
     Indication: Acarodermatitis
     Dosage: DOSE: UNKNOWN (ACCORDING TO WRITTEN INSTRUCTIONS)STRENGTH: 5%
     Route: 003
     Dates: start: 20221204, end: 202212
  2. IVERMECTIN [Interacting]
     Active Substance: IVERMECTIN
     Indication: Acarodermatitis
     Dosage: DOSE: 18 MG TWICE WITH ONE WEEK INTERVALSTRENGTH: 3 MG
     Route: 048
     Dates: start: 202212
  3. OPDIVO [Interacting]
     Active Substance: NIVOLUMAB
     Indication: Malignant melanoma
     Dosage: STRENGTH: UNKNOWN
     Route: 040
     Dates: start: 20220117

REACTIONS (1)
  - Rash [Not Recovered/Not Resolved]

NARRATIVE: CASE EVENT DATE: 20221204
